FAERS Safety Report 9390956 (Version 1)
Quarter: 2013Q3

REPORT INFORMATION
  Report Type: Spontaneous
  Country: US (occurrence: US)
  Receive Date: 20130709
  Receipt Date: 20130709
  Transmission Date: 20140515
  Serious: Yes (Hospitalization)
  Sender: FDA-Public Use
  Company Number: US-JNJFOC-20130616927

PATIENT
  Age: 49 Year
  Sex: Female
  Weight: 83.92 kg

DRUGS (2)
  1. DURAGESIC [Suspect]
     Indication: BACK PAIN
     Route: 062
     Dates: start: 2007, end: 201304
  2. COREG [Concomitant]
     Indication: CARDIAC DISORDER
     Route: 048
     Dates: start: 2012

REACTIONS (12)
  - Cardiac arrest [Recovered/Resolved]
  - Oxygen saturation abnormal [Recovered/Resolved]
  - Drug withdrawal syndrome [Not Recovered/Not Resolved]
  - Muscle spasms [Not Recovered/Not Resolved]
  - Dysphemia [Not Recovered/Not Resolved]
  - Amnesia [Not Recovered/Not Resolved]
  - Hospitalisation [Recovered/Resolved]
  - Abasia [Recovered/Resolved]
  - Menopause [Not Recovered/Not Resolved]
  - Hyperhidrosis [Not Recovered/Not Resolved]
  - Malaise [Not Recovered/Not Resolved]
  - Product quality issue [Unknown]
